FAERS Safety Report 4647612-8 (Version None)
Quarter: 2005Q2

REPORT INFORMATION
  Report Type: 
  Country: None (occurrence: None)
  Receive Date: 20050427
  Receipt Date: 20050427
  Transmission Date: 20051028
  Serious: Yes (Life-Threatening, Hospitalization)
  Sender: FDA-Public Use
  Company Number: None

PATIENT
  Age: 52 Year
  Sex: Female
  Weight: 100.8 kg

DRUGS (4)
  1. PHENYTOIN [Suspect]
     Indication: CONVULSION
  2. CLONIDINE [Concomitant]
  3. HYDROCHLOROTHIAZIDE [Concomitant]
  4. ATENOLOL [Concomitant]

REACTIONS (3)
  - FATIGUE [None]
  - PLATELET COUNT DECREASED [None]
  - RASH PRURITIC [None]
